FAERS Safety Report 18996547 (Version 1)
Quarter: 2021Q1

REPORT INFORMATION
  Report Type: Spontaneous
  Country: US (occurrence: US)
  Receive Date: 20210311
  Receipt Date: 20210311
  Transmission Date: 20210420
  Serious: Yes (Hospitalization)
  Sender: FDA-Public Use
  Company Number: None

PATIENT
  Age: 36 Year
  Sex: Female
  Weight: 58.5 kg

DRUGS (1)
  1. HUMALOG [Suspect]
     Active Substance: INSULIN LISPRO
     Indication: TYPE 1 DIABETES MELLITUS
     Dosage: ?          QUANTITY:1 BOTTLE;OTHER FREQUENCY:CONTINUOUSLY;OTHER ROUTE:SUBCUTANEOUSLY?
     Dates: start: 20200208, end: 20200227

REACTIONS (6)
  - Diabetic ketoacidosis [None]
  - Drug ineffective [None]
  - Suspected product quality issue [None]
  - Sluggishness [None]
  - Drug effect less than expected [None]
  - Insulin resistance [None]

NARRATIVE: CASE EVENT DATE: 20200225
